FAERS Safety Report 14831005 (Version 3)
Quarter: 2021Q1

REPORT INFORMATION
  Report Type: Spontaneous
  Country: HT (occurrence: HT)
  Receive Date: 20180430
  Receipt Date: 20210101
  Transmission Date: 20210419
  Serious: Yes (Death, Hospitalization, Other)
  Sender: FDA-Public Use
  Company Number: PHHY2018HT074391

PATIENT
  Age: 32 Year
  Sex: Male

DRUGS (2)
  1. GLIVEC [Suspect]
     Active Substance: IMATINIB MESYLATE
     Indication: CHRONIC MYELOID LEUKAEMIA
     Dosage: 400 MG, UNK
     Route: 065
     Dates: start: 20170824
  2. GLIVEC [Suspect]
     Active Substance: IMATINIB MESYLATE
     Dosage: 600 MG, QD
     Route: 065

REACTIONS (16)
  - Abdominal pain [Unknown]
  - Splenomegaly [Unknown]
  - Neutrophil count decreased [Unknown]
  - Lymphadenopathy [Unknown]
  - Dyspnoea [Unknown]
  - Asthenia [Unknown]
  - Metamyelocyte count decreased [Unknown]
  - Death [Fatal]
  - Haematocrit decreased [Unknown]
  - Chronic myeloid leukaemia [Unknown]
  - Myelocyte count decreased [Unknown]
  - Melaena [Unknown]
  - Blast cell count increased [Unknown]
  - Conjunctival pallor [Unknown]
  - Haemoglobin decreased [Unknown]
  - White blood cell count increased [Unknown]

NARRATIVE: CASE EVENT DATE: 20180321
